FAERS Safety Report 23359656 (Version 1)
Quarter: 2024Q1

REPORT INFORMATION
  Report Type: Other
  Country: US (occurrence: None)
  Receive Date: 20240103
  Receipt Date: 20240103
  Transmission Date: 20240409
  Serious: Yes (Other)
  Sender: FDA-Public Use
  Company Number: US-ROCHE-3483120

PATIENT
  Age: 45 Year
  Sex: Male

DRUGS (5)
  1. TOCILIZUMAB [Suspect]
     Active Substance: TOCILIZUMAB
     Indication: COVID-19
     Route: 065
  2. MYCOPHENOLATE MOFETIL [Suspect]
     Active Substance: MYCOPHENOLATE MOFETIL
     Indication: COVID-19
     Route: 065
  3. REMDESIVIR [Concomitant]
     Active Substance: REMDESIVIR
  4. TACROLIMUS [Concomitant]
     Active Substance: TACROLIMUS
  5. URSODIOL [Concomitant]
     Active Substance: URSODIOL

REACTIONS (3)
  - Off label use [Unknown]
  - Sepsis [Unknown]
  - Pneumonia [Unknown]
